FAERS Safety Report 16256127 (Version 2)
Quarter: 2019Q2

REPORT INFORMATION
  Report Type: Spontaneous
  Country: DE (occurrence: DE)
  Receive Date: 20190430
  Receipt Date: 20190503
  Transmission Date: 20190711
  Serious: Yes (Other)
  Sender: FDA-Public Use
  Company Number: DE-MYLANLABS-2019M1040038

PATIENT
  Age: 87 Year
  Sex: Female
  Weight: 82 kg

DRUGS (5)
  1. AMIODARONE [Suspect]
     Active Substance: AMIODARONE
     Indication: PRODUCT USED FOR UNKNOWN INDICATION
     Dosage: UNK
     Route: 065
  2. METOPROLOL. [Concomitant]
     Active Substance: METOPROLOL
     Indication: PRODUCT USED FOR UNKNOWN INDICATION
     Dosage: 74.5 MG, BID
     Route: 065
  3. DITIDE [Concomitant]
     Indication: HYPERTENSION
     Dosage: UNK
     Route: 065
  4. ELIQUIS [Suspect]
     Active Substance: APIXABAN
     Indication: CEREBROVASCULAR ACCIDENT PROPHYLAXIS
     Dosage: 2.5 MG, BID
     Route: 065
     Dates: start: 201709
  5. SORTIS [Concomitant]
     Active Substance: ATORVASTATIN
     Indication: PRODUCT USED FOR UNKNOWN INDICATION
     Dosage: UNK
     Route: 065

REACTIONS (9)
  - Renal cyst [Unknown]
  - Macular degeneration [Unknown]
  - Varicose vein [Unknown]
  - Alopecia [Unknown]
  - Internal haemorrhage [Unknown]
  - Meniscus injury [Unknown]
  - Haemorrhage subcutaneous [Unknown]
  - Prescribed underdose [Unknown]
  - Cardiac disorder [Unknown]
